FAERS Safety Report 24926409 (Version 1)
Quarter: 2025Q1

REPORT INFORMATION
  Report Type: Spontaneous
  Country: US (occurrence: US)
  Receive Date: 20250205
  Receipt Date: 20250205
  Transmission Date: 20250408
  Serious: Yes (Other)
  Sender: NOVO NORDISK
  Company Number: US-NOVOPROD-1335174

PATIENT
  Sex: Female

DRUGS (1)
  1. NOVOLOG [Suspect]
     Active Substance: INSULIN ASPART
     Indication: Type 1 diabetes mellitus
     Route: 058

REACTIONS (5)
  - Heart valve replacement [Unknown]
  - Cardiac pacemaker insertion [Unknown]
  - Atrioventricular block [Unknown]
  - Peripheral arterial occlusive disease [Unknown]
  - Skin ulcer [Unknown]
